FAERS Safety Report 4351755-6 (Version None)
Quarter: 2004Q2

REPORT INFORMATION
  Report Type: 
  Country: None (occurrence: None)
  Receive Date: 20040503
  Receipt Date: 20031029
  Transmission Date: 20050107
  Serious: Yes (Death)
  Sender: FDA-Public Use
  Company Number: US-GLAXOSMITHKLINE-B0313777A

PATIENT
  Age: 19 Year
  Sex: Female

DRUGS (10)
  1. WELLBUTRIN [Suspect]
     Route: 048
  2. ACETAMINOPHEN, ASPIRIN AND CAFFEINE [Suspect]
     Route: 048
  3. ASPIRIN [Suspect]
     Route: 065
  4. METFORMIN HCL [Suspect]
     Route: 065
  5. CITALOPRAM [Suspect]
     Route: 065
  6. ACETAMINOPHEN + OXYCODONE [Suspect]
     Route: 065
  7. ACETAMINOPHEN W/ CODEINE [Suspect]
     Route: 065
  8. DIETHYLPROPION HCL [Suspect]
     Route: 065
  9. ACETAMINOPHEN + DEXTROMETHORPHAN + PSEUDOEPHEDRINE [Suspect]
     Route: 065
  10. UNSPECIFIED DRUGS [Suspect]
     Route: 065

REACTIONS (5)
  - ACIDOSIS [None]
  - COMPLETED SUICIDE [None]
  - CONDITION AGGRAVATED [None]
  - HYPOTENSION [None]
  - VENTRICULAR TACHYCARDIA [None]
